FAERS Safety Report 23593253 (Version 4)
Quarter: 2024Q2

REPORT INFORMATION
  Report Type: Spontaneous
  Country: US (occurrence: US)
  Receive Date: 20240304
  Receipt Date: 20240606
  Transmission Date: 20240716
  Serious: Yes (Hospitalization, Other)
  Sender: FDA-Public Use
  Company Number: US-ABBVIE-5659982

PATIENT
  Sex: Male
  Weight: 108 kg

DRUGS (1)
  1. VRAYLAR [Suspect]
     Active Substance: CARIPRAZINE
     Indication: Major depression
     Route: 048
     Dates: start: 20240206, end: 20240325

REACTIONS (9)
  - Multiple sclerosis [Unknown]
  - Rehabilitation therapy [Unknown]
  - Mobility decreased [Unknown]
  - Bradykinesia [Unknown]
  - Rib fracture [Unknown]
  - Confusional state [Unknown]
  - Arthritis [Unknown]
  - Fall [Unknown]
  - Delusional disorder, unspecified type [Unknown]
